FAERS Safety Report 19069768 (Version 8)
Quarter: 2022Q3

REPORT INFORMATION
  Report Type: Spontaneous
  Country: IN (occurrence: IN)
  Receive Date: 20210329
  Receipt Date: 20220831
  Transmission Date: 20221027
  Serious: Yes (Other)
  Sender: FDA-Public Use
  Company Number: IN-PFIZER INC-2021117321

PATIENT
  Age: 59 Year
  Sex: Female
  Weight: 62.4 kg

DRUGS (5)
  1. PALBOCICLIB [Suspect]
     Active Substance: PALBOCICLIB
     Indication: Breast cancer metastatic
     Dosage: 125 MG, 1X/DAY (OD)
     Route: 048
     Dates: start: 20200423
  2. PALBOCICLIB [Suspect]
     Active Substance: PALBOCICLIB
     Dosage: 100 MG, 1X/DAY
     Route: 048
     Dates: end: 202205
  3. FULVESTRANT [Concomitant]
     Active Substance: FULVESTRANT
     Dosage: UNK
     Route: 030
  4. CCM [Concomitant]
     Dosage: 1 TAB ONCE DAILY TO CONTINUE
  5. DULOXETINE [Concomitant]
     Active Substance: DULOXETINE
     Dosage: 30 MG- TWICE DALILY X TO CONT.

REACTIONS (6)
  - Depression [Unknown]
  - Pain [Unknown]
  - Cough [Unknown]
  - Fall [Unknown]
  - Neoplasm progression [Unknown]
  - Off label use [Unknown]

NARRATIVE: CASE EVENT DATE: 20210727
